FAERS Safety Report 16223933 (Version 1)
Quarter: 2019Q2

REPORT INFORMATION
  Report Type: Report from Study
  Country: US (occurrence: US)
  Receive Date: 20190422
  Receipt Date: 20190422
  Transmission Date: 20190711
  Serious: Yes (Other)
  Sender: FDA-Public Use
  Company Number: US-MYLANLABS-2019M1034481

PATIENT
  Sex: Female
  Weight: 64 kg

DRUGS (1)
  1. GLATIRAMER ACETATE INJECTION [Suspect]
     Active Substance: GLATIRAMER ACETATE
     Indication: RELAPSING-REMITTING MULTIPLE SCLEROSIS
     Dosage: 40 MILLIGRAM, 3XW
     Route: 058

REACTIONS (8)
  - Multiple sclerosis [Unknown]
  - Injection site bruising [Unknown]
  - Injection site swelling [Unknown]
  - Incorrect dose administered [Unknown]
  - Injection site erythema [Unknown]
  - Injection site pain [Unknown]
  - Accidental exposure to product [Unknown]
  - Product dose omission [Unknown]
